FAERS Safety Report 9712166 (Version 2)
Quarter: 2013Q4

REPORT INFORMATION
  Report Type: Spontaneous
  Country: US (occurrence: US)
  Receive Date: 20131126
  Receipt Date: 20131126
  Transmission Date: 20140711
  Serious: Yes (Hospitalization)
  Sender: FDA-Public Use
  Company Number: US-BAXTER-2013BAX045919

PATIENT
  Sex: Male

DRUGS (5)
  1. DIANEAL LOW CALCIUM (ULTRABAG) [Suspect]
     Indication: RENAL FAILURE CHRONIC
     Route: 033
     Dates: start: 20110627
  2. DIANEAL LOW CALCIUM (ULTRABAG) [Suspect]
     Indication: RENAL FAILURE CHRONIC
     Route: 033
     Dates: start: 20110627
  3. HYDRALAZINE [Suspect]
     Indication: HYPERTENSION
     Route: 048
     Dates: end: 20131112
  4. NORVASC [Suspect]
     Indication: HYPERTENSION
     Route: 048
     Dates: end: 20131112
  5. NEBIVOLOL [Suspect]
     Indication: HYPERTENSION
     Route: 048
     Dates: end: 20131112

REACTIONS (1)
  - Hypotension [Recovered/Resolved]
